FAERS Safety Report 9336683 (Version 1)
Quarter: 2013Q2

REPORT INFORMATION
  Report Type: Report from Study
  Country: CA (occurrence: CA)
  Receive Date: 20130607
  Receipt Date: 20130607
  Transmission Date: 20140414
  Serious: Yes (Death)
  Sender: FDA-Public Use
  Company Number: PHHY2013CA057560

PATIENT
  Age: 77 Year
  Sex: Male

DRUGS (4)
  1. ACLASTA [Suspect]
     Indication: OSTEOPOROSIS
     Dosage: UNK
     Route: 042
     Dates: start: 20090617
  2. ACLASTA [Suspect]
     Dosage: UNK
     Route: 042
     Dates: start: 20100616
  3. ACLASTA [Suspect]
     Dosage: UNK
     Route: 042
     Dates: start: 20110616
  4. ACLASTA [Suspect]
     Dosage: UNK
     Route: 042
     Dates: start: 20120615

REACTIONS (1)
  - Death [Fatal]
